FAERS Safety Report 4969248-1 (Version None)
Quarter: 2006Q2

REPORT INFORMATION
  Report Type: 
  Country: None (occurrence: None)
  Receive Date: 20060411
  Receipt Date: 20060331
  Transmission Date: 20061013
  Serious: Yes (Hospitalization)
  Sender: FDA-Public Use
  Company Number: BE-AVENTIS-200613412GDDC

PATIENT
  Age: 70 Year
  Sex: Male

DRUGS (5)
  1. KETEK [Suspect]
     Indication: RESPIRATORY TRACT INFECTION
     Dosage: DOSE: UNK
     Route: 048
     Dates: start: 20060320, end: 20060301
  2. KETEK [Suspect]
     Indication: SUPERINFECTION
     Dosage: DOSE: UNK
     Route: 048
     Dates: start: 20060320, end: 20060301
  3. ACTONEL [Concomitant]
     Dosage: DOSE: UNK
  4. LIPITOR [Concomitant]
     Dosage: DOSE: UNK
  5. AMLOR [Concomitant]

REACTIONS (2)
  - ATRIOVENTRICULAR BLOCK [None]
  - CARDIAC ARREST [None]
